FAERS Safety Report 12222233 (Version 1)
Quarter: 2016Q1

REPORT INFORMATION
  Report Type: Spontaneous
  Country: US (occurrence: US)
  Receive Date: 20160330
  Receipt Date: 20160330
  Transmission Date: 20160526
  Serious: No
  Sender: FDA-Public Use
  Company Number: US-TEVA-646378USA

PATIENT
  Sex: Male
  Weight: 61 kg

DRUGS (6)
  1. MORPHINE [Concomitant]
     Active Substance: MORPHINE
     Indication: PAIN
  2. ALLOPURINOL. [Concomitant]
     Active Substance: ALLOPURINOL
  3. SYNRIBO [Suspect]
     Active Substance: OMACETAXINE MEPESUCCINATE
     Dosage: 4.28 MILLIGRAM DAILY; HOME ADMININSTRATION
     Dates: start: 20160312
  4. SYNRIBO [Suspect]
     Active Substance: OMACETAXINE MEPESUCCINATE
     Indication: CHRONIC MYELOID LEUKAEMIA
     Dosage: HOME ADMININSTRATION
     Dates: start: 2016
  5. COLACE [Concomitant]
     Active Substance: DOCUSATE SODIUM
  6. ZOFRAN [Concomitant]
     Active Substance: ONDANSETRON HYDROCHLORIDE

REACTIONS (2)
  - Lymphadenopathy [Not Recovered/Not Resolved]
  - Lymph node pain [Not Recovered/Not Resolved]

NARRATIVE: CASE EVENT DATE: 2016
